FAERS Safety Report 7523099 (Version 5)
Quarter: 2014Q1

REPORT INFORMATION
  Report Type: Spontaneous
  Country: US (occurrence: US)
  Receive Date: 20100803
  Receipt Date: 20140116
  Transmission Date: 20141002
  Serious: Yes (Other)
  Sender: FDA-Public Use
  Company Number: US-BAYER-201029336NA

PATIENT
  Age: 17 Year
  Sex: Female
  Weight: 95.24 kg

DRUGS (3)
  1. YAZ [Suspect]
     Indication: DYSMENORRHOEA
     Dosage: UNK UNK, UNK
     Route: 048
     Dates: start: 20080320, end: 200909
  2. YAZ [Suspect]
     Indication: POLYCYSTIC OVARIES
  3. ADVIL [Concomitant]
     Indication: HEADACHE

REACTIONS (3)
  - Cholelithiasis [Unknown]
  - Cholecystitis chronic [None]
  - Gallbladder disorder [Unknown]
